FAERS Safety Report 7422673-1 (Version None)
Quarter: 2011Q2

REPORT INFORMATION
  Report Type: 
  Country: None (occurrence: None)
  Receive Date: 20110419
  Receipt Date: 20110407
  Transmission Date: 20111010
  Serious: Yes (Life-Threatening, Hospitalization, Other)
  Sender: FDA-Public Use
  Company Number: US-ELI_LILLY_AND_COMPANY-US201104002600

PATIENT
  Age: 51 Year
  Sex: Female

DRUGS (7)
  1. FLUOXETINE HYDROCHLORIDE [Suspect]
  2. OXYCODONE [Concomitant]
     Indication: PAIN
  3. LEXAPRO [Concomitant]
     Dosage: 20 MG, UNK
  4. CYMBALTA [Suspect]
     Dosage: 60 MG, QD
  5. CYMBALTA [Suspect]
     Dosage: 90 MG, QD
     Dates: end: 20101001
  6. CYMBALTA [Suspect]
     Indication: BACK PAIN
     Dosage: 30 MG, QD
  7. OXYCONTIN [Concomitant]
     Indication: PAIN

REACTIONS (16)
  - HYSTERECTOMY [None]
  - MOBILITY DECREASED [None]
  - FEELING ABNORMAL [None]
  - SEROTONIN SYNDROME [None]
  - URINARY RETENTION [None]
  - NAUSEA [None]
  - DYSPNOEA [None]
  - POST PROCEDURAL HAEMORRHAGE [None]
  - DRUG WITHDRAWAL SYNDROME [None]
  - SOMNOLENCE [None]
  - POST PROCEDURAL HAEMATOMA [None]
  - DRUG PRESCRIBING ERROR [None]
  - DIZZINESS [None]
  - PARAESTHESIA [None]
  - HYPERHIDROSIS [None]
  - TREMOR [None]
